FAERS Safety Report 5922872-1 (Version None)
Quarter: 2008Q4

REPORT INFORMATION
  Report Type: 
  Country: None (occurrence: None)
  Receive Date: 20081017
  Receipt Date: 20081015
  Transmission Date: 20090506
  Serious: Yes (Life-Threatening)
  Sender: FDA-Public Use
  Company Number: PHNU2007DE03831

PATIENT
  Sex: Female

DRUGS (3)
  1. TRILEPTAL [Suspect]
     Indication: EPILEPSY
     Dosage: 750-0-900
     Route: 048
     Dates: end: 20071112
  2. TRILEPTAL [Suspect]
     Dosage: REDUCED DOSAGE
     Route: 048
     Dates: start: 20071113
  3. TRILEPTAL [Suspect]
     Dosage: 300-0-300
     Route: 048
     Dates: start: 20071115

REACTIONS (3)
  - ATRIOVENTRICULAR BLOCK COMPLETE [None]
  - CARDIAC ARREST [None]
  - CARDIAC PACEMAKER INSERTION [None]
